FAERS Safety Report 5417987-0 (Version None)
Quarter: 2007Q3

REPORT INFORMATION
  Report Type: 
  Country: None (occurrence: None)
  Receive Date: 20070817
  Receipt Date: 20070810
  Transmission Date: 20080115
  Serious: Yes (Hospitalization, Other)
  Sender: FDA-Public Use
  Company Number: AU-AVENTIS-200717431GDDC

PATIENT
  Age: 73 Year
  Sex: Female

DRUGS (3)
  1. LANTUS [Suspect]
     Route: 058
     Dates: start: 20050612
  2. AUTOPEN INSULIN INJECTION PEN [Suspect]
  3. COVERSYL                           /00790701/ [Concomitant]

REACTIONS (2)
  - COUGH [None]
  - HAEMATOMA [None]
